FAERS Safety Report 20484682 (Version 2)
Quarter: 2022Q1

REPORT INFORMATION
  Report Type: Report from Study
  Country: ZA (occurrence: ZA)
  Receive Date: 20220217
  Receipt Date: 20220318
  Transmission Date: 20220423
  Serious: Yes (Disabling, Other)
  Sender: FDA-Public Use
  Company Number: ZA-BAYER-2022A023216

PATIENT
  Age: 85 Year
  Sex: Male

DRUGS (1)
  1. EYLEA [Suspect]
     Active Substance: AFLIBERCEPT
     Indication: Age-related macular degeneration
     Dosage: UNK
     Dates: start: 20180817

REACTIONS (2)
  - Blindness [Not Recovered/Not Resolved]
  - Macular oedema [Not Recovered/Not Resolved]
